FAERS Safety Report 10085742 (Version 2)
Quarter: 2014Q2

REPORT INFORMATION
  Report Type: Report from Study
  Country: RO (occurrence: RO)
  Receive Date: 20140418
  Receipt Date: 20140508
  Transmission Date: 20141212
  Serious: Yes (Other)
  Sender: FDA-Public Use
  Company Number: RO-ROCHE-1380560

PATIENT
  Sex: 0

DRUGS (2)
  1. PEG-INTERFERON ALFA 2A [Suspect]
     Indication: HEPATITIS C
     Route: 065
  2. RIBAVIRIN [Concomitant]
     Indication: HEPATITIS C

REACTIONS (9)
  - Pericarditis [Unknown]
  - Cardiac failure [Unknown]
  - Retinopathy [Unknown]
  - Thyroid disorder [Unknown]
  - Diabetes mellitus [Unknown]
  - Thrombophlebitis [Unknown]
  - Granulomatosis with polyangiitis [Unknown]
  - Sarcoidosis [Unknown]
  - Pneumocystis jirovecii pneumonia [Unknown]
